FAERS Safety Report 14346225 (Version 1)
Quarter: 2018Q1

REPORT INFORMATION
  Report Type: Spontaneous
  Country: US (occurrence: US)
  Receive Date: 20180103
  Receipt Date: 20180103
  Transmission Date: 20180509
  Serious: Yes (Other)
  Sender: FDA-Public Use
  Company Number: US-PFIZER INC-2017555475

PATIENT

DRUGS (3)
  1. PHENYLEPHRINE [Concomitant]
     Active Substance: PHENYLEPHRINE\PHENYLEPHRINE HYDROCHLORIDE
     Indication: SKIN GRAFT
     Dosage: 3.5 MG, UNK
  2. TETRACAINE. [Concomitant]
     Active Substance: TETRACAINE
     Indication: SKIN GRAFT
     Dosage: 14 MG, UNK
  3. MORPHINE SULFATE. [Suspect]
     Active Substance: MORPHINE SULFATE
     Indication: SKIN GRAFT
     Dosage: 0.14 MG, UNK
     Route: 037

REACTIONS (1)
  - Hypothermia [Unknown]
